FAERS Safety Report 9373626 (Version 2)
Quarter: 2013Q3

REPORT INFORMATION
  Report Type: Spontaneous
  Country: JP (occurrence: JP)
  Receive Date: 20130627
  Receipt Date: 20130718
  Transmission Date: 20140515
  Serious: Yes (Hospitalization)
  Sender: FDA-Public Use
  Company Number: JP-OTSUKA-JP-2013-12266

PATIENT
  Age: 88 Year
  Sex: Female
  Weight: 38 kg

DRUGS (10)
  1. SAMSCA [Suspect]
     Indication: FLUID RETENTION
     Dosage: 7.5 MG MILLIGRAM(S), QD
     Route: 048
     Dates: start: 20130520, end: 20130610
  2. THYRADIN S [Concomitant]
     Dosage: 12.5 MCG, QD
     Route: 048
     Dates: end: 20130703
  3. LANIRAPID [Concomitant]
     Dosage: 0.05 MG MILLIGRAM(S), QD
     Route: 048
     Dates: end: 20130703
  4. PARIET [Concomitant]
     Dosage: 10 MG MILLIGRAM(S), QD
     Route: 048
     Dates: end: 20130703
  5. ARGAMATE [Concomitant]
     Dosage: 25 G GRAM(S), QD
     Route: 048
     Dates: end: 20130703
  6. ALDACTONE A [Concomitant]
     Dosage: 25 MG MILLIGRAM(S), QD
     Route: 048
     Dates: end: 20130703
  7. WARFARIN K [Concomitant]
     Dosage: 1.5 MG MILLIGRAM(S), QD
     Route: 048
     Dates: end: 20130703
  8. ANPLAG [Concomitant]
     Dosage: 100 MG MILLIGRAM(S), TID
     Route: 048
     Dates: end: 20130703
  9. LASIX [Concomitant]
     Dosage: 40 MG MILLIGRAM(S), QD
     Route: 048
     Dates: end: 20130703
  10. LENDORMIN [Concomitant]
     Dosage: 0.25 MG MILLIGRAM(S), BID
     Route: 048

REACTIONS (2)
  - Rash generalised [Recovered/Resolved]
  - Pruritus [Unknown]
